FAERS Safety Report 23943727 (Version 2)
Quarter: 2024Q3

REPORT INFORMATION
  Report Type: Spontaneous
  Country: US (occurrence: US)
  Receive Date: 20240606
  Receipt Date: 20240710
  Transmission Date: 20241016
  Serious: Yes (Hospitalization)
  Sender: BRISTOL MYERS SQUIBB
  Company Number: US-BRISTOL-MYERS SQUIBB COMPANY-2024-090268

PATIENT
  Age: 86 Year
  Sex: Female
  Weight: 53.07 kg

DRUGS (2)
  1. LENALIDOMIDE [Suspect]
     Active Substance: LENALIDOMIDE
     Indication: Myelodysplastic syndrome with multilineage dysplasia
     Dosage: D 1-21 Q 28 DAYS
     Route: 048
     Dates: start: 20230209
  2. LENALIDOMIDE [Suspect]
     Active Substance: LENALIDOMIDE
     Dosage: DAY 1-21 Q 28 DAYS
     Route: 048

REACTIONS (4)
  - Hypertension [Not Recovered/Not Resolved]
  - Asthenia [Recovered/Resolved]
  - Red blood cell count decreased [Recovered/Resolved]
  - Cardiac disorder [Unknown]
